FAERS Safety Report 22897680 (Version 3)
Quarter: 2024Q1

REPORT INFORMATION
  Report Type: Report from Study
  Country: ES (occurrence: ES)
  Receive Date: 20230902
  Receipt Date: 20240222
  Transmission Date: 20240410
  Serious: Yes (Other)
  Sender: FDA-Public Use
  Company Number: ES-TAKEDA-2023TUS085320

PATIENT
  Age: 66 Year
  Sex: Male

DRUGS (27)
  1. TEDUGLUTIDE [Suspect]
     Active Substance: TEDUGLUTIDE
     Indication: Short-bowel syndrome
     Dosage: 3.35 MILLIGRAM, QD
     Route: 042
     Dates: start: 20200224, end: 20201020
  2. TEDUGLUTIDE [Suspect]
     Active Substance: TEDUGLUTIDE
     Indication: Short-bowel syndrome
     Dosage: 3.35 MILLIGRAM, QD
     Route: 042
     Dates: start: 20200224, end: 20201020
  3. TEDUGLUTIDE [Suspect]
     Active Substance: TEDUGLUTIDE
     Indication: Short-bowel syndrome
     Dosage: 3.35 MILLIGRAM, QD
     Route: 042
     Dates: start: 20200224, end: 20201020
  4. TEDUGLUTIDE [Suspect]
     Active Substance: TEDUGLUTIDE
     Indication: Short-bowel syndrome
     Dosage: 3.35 MILLIGRAM, QD
     Route: 042
     Dates: start: 20200224, end: 20201020
  5. TEDUGLUTIDE [Suspect]
     Active Substance: TEDUGLUTIDE
     Dosage: 3.35 MILLIGRAM, 3/WEEK
     Route: 042
     Dates: start: 20201020, end: 20210203
  6. TEDUGLUTIDE [Suspect]
     Active Substance: TEDUGLUTIDE
     Dosage: 3.35 MILLIGRAM, 3/WEEK
     Route: 042
     Dates: start: 20201020, end: 20210203
  7. TEDUGLUTIDE [Suspect]
     Active Substance: TEDUGLUTIDE
     Dosage: 3.35 MILLIGRAM, 3/WEEK
     Route: 042
     Dates: start: 20201020, end: 20210203
  8. TEDUGLUTIDE [Suspect]
     Active Substance: TEDUGLUTIDE
     Dosage: 3.35 MILLIGRAM, 3/WEEK
     Route: 042
     Dates: start: 20201020, end: 20210203
  9. TEDUGLUTIDE [Suspect]
     Active Substance: TEDUGLUTIDE
     Dosage: 3.35 MILLIGRAM, 4/WEEK
     Route: 042
     Dates: start: 20210203, end: 20210217
  10. TEDUGLUTIDE [Suspect]
     Active Substance: TEDUGLUTIDE
     Dosage: 3.35 MILLIGRAM, 4/WEEK
     Route: 042
     Dates: start: 20210203, end: 20210217
  11. TEDUGLUTIDE [Suspect]
     Active Substance: TEDUGLUTIDE
     Dosage: 3.35 MILLIGRAM, 4/WEEK
     Route: 042
     Dates: start: 20210203, end: 20210217
  12. TEDUGLUTIDE [Suspect]
     Active Substance: TEDUGLUTIDE
     Dosage: 3.35 MILLIGRAM, 4/WEEK
     Route: 042
     Dates: start: 20210203, end: 20210217
  13. TEDUGLUTIDE [Suspect]
     Active Substance: TEDUGLUTIDE
     Dosage: 3.35 MILLIGRAM, 3/WEEK
     Route: 042
     Dates: start: 20210217, end: 20210721
  14. TEDUGLUTIDE [Suspect]
     Active Substance: TEDUGLUTIDE
     Dosage: 3.35 MILLIGRAM, 3/WEEK
     Route: 042
     Dates: start: 20210217, end: 20210721
  15. TEDUGLUTIDE [Suspect]
     Active Substance: TEDUGLUTIDE
     Dosage: 3.35 MILLIGRAM, 3/WEEK
     Route: 042
     Dates: start: 20210217, end: 20210721
  16. TEDUGLUTIDE [Suspect]
     Active Substance: TEDUGLUTIDE
     Dosage: 3.35 MILLIGRAM, 3/WEEK
     Route: 042
     Dates: start: 20210217, end: 20210721
  17. TEDUGLUTIDE [Suspect]
     Active Substance: TEDUGLUTIDE
     Dosage: 3.35 MILLIGRAM, 1/WEEK
     Route: 042
     Dates: start: 20210721, end: 20211224
  18. TEDUGLUTIDE [Suspect]
     Active Substance: TEDUGLUTIDE
     Dosage: 3.35 MILLIGRAM, 1/WEEK
     Route: 042
     Dates: start: 20210721, end: 20211224
  19. TEDUGLUTIDE [Suspect]
     Active Substance: TEDUGLUTIDE
     Dosage: 3.35 MILLIGRAM, 1/WEEK
     Route: 042
     Dates: start: 20210721, end: 20211224
  20. TEDUGLUTIDE [Suspect]
     Active Substance: TEDUGLUTIDE
     Dosage: 3.35 MILLIGRAM, 1/WEEK
     Route: 042
     Dates: start: 20210721, end: 20211224
  21. ESOMEPRAZOLE [Concomitant]
     Active Substance: ESOMEPRAZOLE
     Indication: Hiatus hernia
     Dosage: 40 MILLIGRAM, QD
     Route: 048
     Dates: start: 20230816
  22. CHOLECALCIFEROL [Concomitant]
     Active Substance: CHOLECALCIFEROL
     Indication: Vitamin D deficiency
     Dosage: 5 GTT DROPS, QD
     Route: 048
     Dates: start: 20230503
  23. LORMETAZEPAM [Concomitant]
     Active Substance: LORMETAZEPAM
     Indication: Insomnia
     Dosage: 2 MILLIGRAM, QD
     Route: 048
     Dates: start: 20220921
  24. ACETAMINOPHEN [Concomitant]
     Active Substance: ACETAMINOPHEN
     Indication: Pain
     Dosage: UNK UNK, BID
     Route: 048
     Dates: start: 20211103
  25. CIPROFLOXACIN [Concomitant]
     Active Substance: CIPROFLOXACIN
     Indication: Sepsis
     Dosage: 500 MILLIGRAM, BID
     Route: 048
     Dates: start: 20230915, end: 20230921
  26. ESOXX ONE [Concomitant]
     Indication: Oesophagitis
     Dosage: 10 MILLILITER, QD
     Route: 048
     Dates: start: 20231027
  27. EPREX [Concomitant]
     Active Substance: ERYTHROPOIETIN
     Indication: Anaemia
     Dosage: 4000 INTERNATIONAL UNIT, 1/WEEK
     Route: 058
     Dates: start: 20230919

REACTIONS (2)
  - Deafness [Not Recovered/Not Resolved]
  - Depression [Recovered/Resolved]

NARRATIVE: CASE EVENT DATE: 20230601
